FAERS Safety Report 14619809 (Version 1)
Quarter: 2018Q1

REPORT INFORMATION
  Report Type: Spontaneous
  Country: US (occurrence: US)
  Receive Date: 20180309
  Receipt Date: 20180309
  Transmission Date: 20180509
  Serious: Yes (Other)
  Sender: FDA-Public Use
  Company Number: None

PATIENT
  Age: 71 Year
  Sex: Female
  Weight: 56.7 kg

DRUGS (5)
  1. SALT TISSUE # 4 [Concomitant]
  2. BLACK SEED OIL [Concomitant]
  3. SALT TISSUE #11 [Concomitant]
  4. AMLODIPINE [Concomitant]
     Active Substance: AMLODIPINE BESYLATE
  5. COSOPT PF [Suspect]
     Active Substance: DORZOLAMIDE HYDROCHLORIDE\TIMOLOL MALEATE
     Indication: GLAUCOMA
     Dosage: ?          QUANTITY:1 DROP(S);?
     Route: 047
     Dates: start: 20180306, end: 20180306

REACTIONS (5)
  - Throat irritation [None]
  - Nausea [None]
  - Malaise [None]
  - Abdominal discomfort [None]
  - Gastrointestinal motility disorder [None]

NARRATIVE: CASE EVENT DATE: 20180306
